FAERS Safety Report 15616605 (Version 2)
Quarter: 2018Q4

REPORT INFORMATION
  Report Type: Report from Study
  Country: DE (occurrence: DE)
  Receive Date: 20181114
  Receipt Date: 20181129
  Transmission Date: 20190205
  Serious: No
  Sender: FDA-Public Use
  Company Number: PHHY2018DE154636

PATIENT
  Age: 71 Year
  Sex: Male

DRUGS (3)
  1. TAFINLAR [Suspect]
     Active Substance: DABRAFENIB MESYLATE
     Indication: METASTATIC MALIGNANT MELANOMA
     Route: 048
  2. MEKINIST [Suspect]
     Active Substance: TRAMETINIB DIMETHYL SULFOXIDE
     Indication: METASTATIC MALIGNANT MELANOMA
     Route: 048
  3. IPILIMUMAB [Suspect]
     Active Substance: IPILIMUMAB
     Indication: MALIGNANT MELANOMA
     Dosage: Q3W (ONCE EVERY 3 WEEKS)
     Route: 042
     Dates: start: 20180607, end: 20180628

REACTIONS (1)
  - Toxicity to various agents [Unknown]

NARRATIVE: CASE EVENT DATE: 20180702
